FAERS Safety Report 9458301 (Version 1)
Quarter: 2013Q3

REPORT INFORMATION
  Report Type: Spontaneous
  Country: US (occurrence: US)
  Receive Date: 20130814
  Receipt Date: 20130814
  Transmission Date: 20140515
  Serious: No
  Sender: FDA-Public Use
  Company Number: US-BAXTER-2013BAX031348

PATIENT
  Age: 77 Year
  Sex: Female
  Weight: 53.64 kg

DRUGS (22)
  1. GAMMAGARD LIQUID [Suspect]
     Indication: IMMUNODEFICIENCY COMMON VARIABLE
     Route: 042
     Dates: start: 20130705, end: 20130705
  2. CARDIZEM [Concomitant]
     Indication: PRODUCT USED FOR UNKNOWN INDICATION
  3. LEVOCETIRIZINE [Concomitant]
     Indication: PRODUCT USED FOR UNKNOWN INDICATION
  4. NEURONTIN [Concomitant]
     Indication: PRODUCT USED FOR UNKNOWN INDICATION
  5. OXYCODONE [Concomitant]
     Indication: PRODUCT USED FOR UNKNOWN INDICATION
  6. SINGULAIR [Concomitant]
     Indication: PRODUCT USED FOR UNKNOWN INDICATION
  7. SPIRIVA [Concomitant]
     Indication: PRODUCT USED FOR UNKNOWN INDICATION
  8. SYMBICORT [Concomitant]
     Indication: PRODUCT USED FOR UNKNOWN INDICATION
     Dosage: 80-4.5
  9. CYCLOSPORINE [Concomitant]
     Indication: ASTHMA
  10. LORAZEPAM [Concomitant]
     Indication: PRODUCT USED FOR UNKNOWN INDICATION
  11. LASIX [Concomitant]
     Indication: PRODUCT USED FOR UNKNOWN INDICATION
  12. PRILOSEC [Concomitant]
     Indication: PRODUCT USED FOR UNKNOWN INDICATION
  13. PROVENTIL [Concomitant]
     Indication: PRODUCT USED FOR UNKNOWN INDICATION
  14. PLAQUENIL [Concomitant]
  15. PROBIOTICS [Concomitant]
     Indication: NUTRITIONAL SUPPLEMENTATION
     Dosage: 1-2 CAPSULES DAILY
  16. CALCIUM CITRATE [Concomitant]
     Indication: NUTRITIONAL SUPPLEMENTATION
     Dosage: 1 TBLSP DAILY
  17. CALCIUM CITRATE [Concomitant]
     Indication: NUTRITIONAL SUPPLEMENTATION
  18. VITAMIN D3 [Concomitant]
     Indication: NUTRITIONAL SUPPLEMENTATION
     Dosage: 2000 U DAILY
  19. VITAMIN D3 [Concomitant]
     Dosage: 1 TABLESPOON
  20. MULTIVITAMINS [Concomitant]
     Indication: NUTRITIONAL SUPPLEMENTATION
     Dosage: 1 CAPSULE DAILY
  21. JUICE PLUS [Concomitant]
     Indication: NUTRITIONAL SUPPLEMENTATION
  22. MAGNESIUM [Concomitant]
     Indication: NUTRITIONAL SUPPLEMENTATION
     Dosage: 1 TABLESPOON
     Route: 065

REACTIONS (4)
  - Feeling abnormal [Recovered/Resolved]
  - Influenza like illness [Recovered/Resolved]
  - Headache [Recovered/Resolved]
  - Fatigue [Recovered/Resolved]
